FAERS Safety Report 9793203 (Version 2)
Quarter: 2014Q1

REPORT INFORMATION
  Report Type: Report from Study
  Country: US (occurrence: US)
  Receive Date: 20140102
  Receipt Date: 20140106
  Transmission Date: 20141002
  Serious: Yes (Hospitalization)
  Sender: FDA-Public Use
  Company Number: US-ABBVIE-13P-163-1184577-00

PATIENT
  Age: 60 Year
  Sex: Female

DRUGS (11)
  1. TUMS [Concomitant]
     Indication: BLOOD CALCIUM
  2. HUMIRA [Suspect]
     Indication: PSORIASIS
     Dates: start: 201310
  3. NEXIUM [Concomitant]
     Indication: GASTROOESOPHAGEAL REFLUX DISEASE
  4. LISINOPRIL [Concomitant]
     Indication: HYPERTENSION
  5. SYNTHROID [Concomitant]
     Indication: HYPOTHYROIDISM
  6. OXYCODONE [Concomitant]
     Indication: PAIN
     Dosage: 10/325MG
  7. VITAMIN D [Concomitant]
     Indication: PRODUCT USED FOR UNKNOWN INDICATION
  8. TRIAMCINOLONE [Concomitant]
     Indication: PSORIASIS
  9. METOCLOPRAMIDE [Concomitant]
     Indication: PRODUCT USED FOR UNKNOWN INDICATION
     Dosage: 5MG/5ML 1-2 TSP; AS NEEDED 1 IN 1 DAY
  10. TRIMETHOBENZAMIDE [Concomitant]
     Indication: PRODUCT USED FOR UNKNOWN INDICATION
  11. STOOL SOFTENER [Concomitant]
     Indication: PRODUCT USED FOR UNKNOWN INDICATION

REACTIONS (3)
  - Drug dose omission [Not Recovered/Not Resolved]
  - Psoriasis [Not Recovered/Not Resolved]
  - Injection site pain [Recovered/Resolved]
